FAERS Safety Report 10007265 (Version 2)
Quarter: 2014Q1

REPORT INFORMATION
  Report Type: Spontaneous
  Country: GB (occurrence: GB)
  Receive Date: 20140313
  Receipt Date: 20140313
  Transmission Date: 20141002
  Serious: Yes (Other)
  Sender: FDA-Public Use
  Company Number: GB-TEVA-462403ISR

PATIENT
  Age: 42 Year
  Sex: Female

DRUGS (2)
  1. FEMSEVEN CONTI [Suspect]
     Indication: PREMATURE MENOPAUSE
     Dosage: 50 MICROGRAMS/7 MICROGRAMS/24 HOURS TRANSDERMAL PATCHES
     Route: 062
     Dates: start: 201311
  2. FEMSEVEN CONTI [Suspect]
     Indication: HORMONE REPLACEMENT THERAPY

REACTIONS (13)
  - Hypersensitivity [Recovered/Resolved]
  - Inflammation [Unknown]
  - Pruritus [Unknown]
  - Skin irritation [Not Recovered/Not Resolved]
  - Application site swelling [Not Recovered/Not Resolved]
  - Application site erythema [Not Recovered/Not Resolved]
  - Product gel formation [Not Recovered/Not Resolved]
  - Skin exfoliation [Not Recovered/Not Resolved]
  - Application site pain [Not Recovered/Not Resolved]
  - Pruritus [Not Recovered/Not Resolved]
  - Application site pain [Not Recovered/Not Resolved]
  - Disturbance in attention [Unknown]
  - Application site erosion [Not Recovered/Not Resolved]
